FAERS Safety Report 9614374 (Version 1)
Quarter: 2013Q4

REPORT INFORMATION
  Report Type: Report from Study
  Country: US (occurrence: US)
  Receive Date: 20131011
  Receipt Date: 20131011
  Transmission Date: 20140711
  Serious: Yes (Life-Threatening, Hospitalization)
  Sender: FDA-Public Use
  Company Number: US-JNJFOC-20131004515

PATIENT
  Age: 28 Year
  Sex: Male

DRUGS (2)
  1. NUCYNTA ER [Suspect]
     Indication: PRODUCT USED FOR UNKNOWN INDICATION
     Route: 065
  2. OXYCODONE [Suspect]
     Indication: PRODUCT USED FOR UNKNOWN INDICATION
     Route: 065

REACTIONS (18)
  - Unresponsive to stimuli [Recovering/Resolving]
  - Respiratory depression [Unknown]
  - Depressed level of consciousness [Unknown]
  - Hypotension [Recovered/Resolved]
  - Tachycardia [Unknown]
  - Convulsion [Unknown]
  - Bradycardia [Unknown]
  - Pneumonia [Unknown]
  - Toxicity to various agents [Unknown]
  - Overdose [Unknown]
  - Intentional drug misuse [Unknown]
  - Non-cardiogenic pulmonary oedema [Unknown]
  - Aspiration [Unknown]
  - Agitation [Unknown]
  - Acidosis [Unknown]
  - Wrong technique in drug usage process [Unknown]
  - Rhabdomyolysis [Unknown]
  - Incorrect route of drug administration [Unknown]
